FAERS Safety Report 14138036 (Version 1)
Quarter: 2017Q4

REPORT INFORMATION
  Report Type: Spontaneous
  Country: CL (occurrence: CL)
  Receive Date: 20171027
  Receipt Date: 20171027
  Transmission Date: 20180321
  Serious: Yes (Other)
  Sender: FDA-Public Use
  Company Number: CL-PFIZER INC-2017460533

PATIENT
  Age: 34 Year
  Sex: Female

DRUGS (3)
  1. ARCOXIA [Suspect]
     Active Substance: ETORICOXIB
     Indication: MYALGIA
     Dosage: 120 MG, UNK
     Route: 048
     Dates: start: 20150903, end: 20150903
  2. REFLEXAN [Suspect]
     Active Substance: CYCLOBENZAPRINE
     Indication: MYALGIA
     Dosage: 5 MG, UNK
     Route: 048
     Dates: start: 20150902, end: 20150903
  3. PRISTIQ EXTENDED-RELEASE [Suspect]
     Active Substance: DESVENLAFAXINE SUCCINATE
     Indication: DEPRESSION
     Dosage: 50 MG, UNK
     Route: 048
     Dates: start: 20150903, end: 20150903

REACTIONS (9)
  - Hallucination [Recovered/Resolved]
  - Speech disorder [Recovered/Resolved]
  - Hyperhidrosis [Recovered/Resolved]
  - Visual impairment [Unknown]
  - Bipolar disorder [Unknown]
  - Thirst [Recovered/Resolved]
  - Confusional state [Recovered/Resolved]
  - Vomiting [Recovered/Resolved]
  - Dizziness [Recovered/Resolved]

NARRATIVE: CASE EVENT DATE: 20150903
